FAERS Safety Report 24567217 (Version 1)
Quarter: 2024Q4

REPORT INFORMATION
  Report Type: Spontaneous
  Country: US (occurrence: US)
  Receive Date: 20241030
  Receipt Date: 20241030
  Transmission Date: 20250114
  Serious: Yes (Hospitalization)
  Sender: TEVA
  Company Number: US-TEVA-VS-3258354

PATIENT
  Age: 16 Year
  Sex: Female

DRUGS (2)
  1. BUPROPION [Suspect]
     Active Substance: BUPROPION
     Indication: Intentional overdose
     Dosage: 30-40 TABLETS
     Route: 048
  2. ALCOHOL [Concomitant]
     Active Substance: ALCOHOL
     Indication: Product used for unknown indication
     Dosage: 8 9 ALCOHOLIC BEVERAGES
     Route: 065

REACTIONS (5)
  - Partial seizures [Recovered/Resolved]
  - Areflexia [Recovered/Resolved]
  - Haemodynamic instability [Recovered/Resolved]
  - Mental status changes [Recovered/Resolved]
  - Intentional overdose [Unknown]
